FAERS Safety Report 24645035 (Version 1)
Quarter: 2024Q4

REPORT INFORMATION
  Report Type: Spontaneous
  Country: JP (occurrence: JP)
  Receive Date: 20241121
  Receipt Date: 20241121
  Transmission Date: 20250115
  Serious: Yes (Hospitalization, Other)
  Sender: ROCHE
  Company Number: JP-CHUGAI-2024039677AA

PATIENT
  Age: 6 Decade
  Sex: Female

DRUGS (2)
  1. TECENTRIQ [Suspect]
     Active Substance: ATEZOLIZUMAB
     Indication: Breast cancer
     Dosage: UNK
     Route: 042
  2. PACLITAXEL [Concomitant]
     Active Substance: PACLITAXEL
     Indication: Breast cancer
     Dosage: UNK
     Route: 042

REACTIONS (7)
  - Cellulitis [Unknown]
  - Pneumonitis [Unknown]
  - Pancreatitis [Unknown]
  - Skin ulcer [Unknown]
  - Liver disorder [Unknown]
  - Hypothyroidism [Unknown]
  - Myositis [Unknown]
